FAERS Safety Report 9674990 (Version 3)
Quarter: 2015Q3

REPORT INFORMATION
  Report Type: Spontaneous
  Country: DK (occurrence: DK)
  Receive Date: 20131107
  Receipt Date: 20150818
  Transmission Date: 20151125
  Serious: Yes (Hospitalization, Other)
  Sender: FDA-Public Use
  Company Number: DK-ROCHE-1295707

PATIENT
  Age: 57 Year
  Sex: Female

DRUGS (3)
  1. BONDRONAT [Suspect]
     Active Substance: IBANDRONIC ACID
     Indication: METASTASES TO BONE
     Dosage: STYRKE: 50 MG
     Route: 048
     Dates: start: 200512, end: 200603
  2. BONDRONAT [Suspect]
     Active Substance: IBANDRONIC ACID
     Indication: METASTASES TO BONE
     Dosage: STYRKE: 50 MG
     Route: 048
     Dates: start: 200912, end: 201107
  3. ZOMETA [Suspect]
     Active Substance: ZOLEDRONIC ACID
     Indication: METASTASES TO BONE
     Dosage: STYRKE: 4 MG/100 ML
     Route: 042
     Dates: start: 200603, end: 200912

REACTIONS (2)
  - Jaw operation [Unknown]
  - Osteonecrosis of jaw [Recovered/Resolved with Sequelae]

NARRATIVE: CASE EVENT DATE: 20111024
